FAERS Safety Report 19980986 (Version 1)
Quarter: 2021Q4

REPORT INFORMATION
  Report Type: Spontaneous
  Country: US (occurrence: US)
  Receive Date: 20211021
  Receipt Date: 20211021
  Transmission Date: 20220303
  Serious: No
  Sender: FDA-Public Use
  Company Number: US-GLAXOSMITHKLINE-USCH2021072446

PATIENT

DRUGS (1)
  1. ADVIL PM [Suspect]
     Active Substance: DIPHENHYDRAMINE CITRATE\IBUPROFEN
     Indication: Swelling
     Dosage: UNK

REACTIONS (2)
  - Product use in unapproved indication [Unknown]
  - Drug effective for unapproved indication [Unknown]
